FAERS Safety Report 9898684 (Version 2)
Quarter: 2015Q3

REPORT INFORMATION
  Report Type: Spontaneous
  Country: US (occurrence: US)
  Receive Date: 20140214
  Receipt Date: 20150810
  Transmission Date: 20151125
  Serious: No
  Sender: FDA-Public Use
  Company Number: US-GILEAD-2011-0043576

PATIENT
  Age: 70 Year
  Sex: Female

DRUGS (1)
  1. LETAIRIS [Suspect]
     Active Substance: AMBRISENTAN
     Indication: PRODUCT USED FOR UNKNOWN INDICATION
     Route: 048
     Dates: start: 20110503

REACTIONS (8)
  - Rheumatoid arthritis [Unknown]
  - Unevaluable event [Unknown]
  - Hip fracture [Unknown]
  - Dyspnoea [Unknown]
  - Abasia [Unknown]
  - Cardiomegaly [Unknown]
  - Ventricular dysfunction [Unknown]
  - Ankle fracture [Unknown]
